FAERS Safety Report 24317535 (Version 1)
Quarter: 2024Q3

REPORT INFORMATION
  Report Type: Spontaneous
  Country: GB (occurrence: GB)
  Receive Date: 20240913
  Receipt Date: 20240913
  Transmission Date: 20241016
  Serious: Yes (Other)
  Sender: IDORSIA PHARMACEUTICALS
  Company Number: GB-MHRA-TPP33526842C8655924YC1720078281590

PATIENT
  Age: 69 Year
  Sex: Female
  Weight: 72 kg

DRUGS (8)
  1. QUVIVIQ [Suspect]
     Active Substance: DARIDOREXANT
     Indication: Insomnia
     Dosage: 50 MG, QD
     Route: 048
     Dates: start: 20240625
  2. CALCI D [Concomitant]
     Dosage: CHEW ONE TABLET ONCE DAILY
     Dates: start: 20230926
  3. ENTACAPONE [Concomitant]
     Active Substance: ENTACAPONE
     Dosage: TO BE TAKEN WITH EACH DOSE OF SINEMET
     Dates: start: 20230926
  4. MORPHINE SULFATE [Concomitant]
     Active Substance: MORPHINE SULFATE
     Dosage: ONE- TWO  5ML SPOONFUL (10MG- 20MG) TO BE TAKEN...
     Dates: start: 20230926
  5. REQUIP [Concomitant]
     Active Substance: ROPINIROLE HYDROCHLORIDE
     Dosage: ONE TABLET TO BE TAKE TWICE A DAY,
     Dates: start: 20230926
  6. SINEMET [Concomitant]
     Active Substance: CARBIDOPA\LEVODOPA
     Dosage: ONE TO BE TAKEN FIVE TIMES A DAY
     Dates: start: 20230926
  7. GABAPENTIN [Concomitant]
     Active Substance: GABAPENTIN
     Dosage: ONE CAPSULE TO BE TAKEN THREE TIMES A DAY
     Dates: start: 20240606
  8. SERTRALINE [Concomitant]
     Active Substance: SERTRALINE HYDROCHLORIDE
     Dosage: ONE TABLET TO BE TAKEN DAILY

REACTIONS (2)
  - Sleep paralysis [Recovered/Resolved]
  - Coronavirus infection [Unknown]

NARRATIVE: CASE EVENT DATE: 20240701
